FAERS Safety Report 16598893 (Version 1)
Quarter: 2019Q3

REPORT INFORMATION
  Report Type: Spontaneous
  Country: US (occurrence: US)
  Receive Date: 20190719
  Receipt Date: 20190719
  Transmission Date: 20191004
  Serious: No
  Sender: FDA-Public Use
  Company Number: US-SA-2019SA194586

PATIENT
  Sex: Female

DRUGS (2)
  1. BRILINTA [Concomitant]
     Active Substance: TICAGRELOR
     Dosage: UNK
  2. PRALUENT [Suspect]
     Active Substance: ALIROCUMAB
     Dosage: UNK

REACTIONS (1)
  - Headache [Unknown]
